FAERS Safety Report 23564574 (Version 2)
Quarter: 2024Q1

REPORT INFORMATION
  Report Type: Spontaneous
  Country: JP (occurrence: JP)
  Receive Date: 20240226
  Receipt Date: 20240308
  Transmission Date: 20240410
  Serious: Yes (Other)
  Sender: FDA-Public Use
  Company Number: JP-JNJFOC-20240152083

PATIENT
  Age: 82 Year
  Sex: Male

DRUGS (4)
  1. UPTRAVI [Suspect]
     Active Substance: SELEXIPAG
     Indication: Pulmonary arterial hypertension
     Route: 048
     Dates: start: 202205
  2. OFEV [Concomitant]
     Active Substance: NINTEDANIB
     Indication: Idiopathic interstitial pneumonia
  3. RIIDAI [Concomitant]
     Indication: Diarrhoea
  4. OPSUMIT [Concomitant]
     Active Substance: MACITENTAN
     Indication: Pulmonary arterial hypertension

REACTIONS (3)
  - Deafness [Not Recovered/Not Resolved]
  - Diarrhoea [Recovered/Resolved]
  - Dyspnoea [Not Recovered/Not Resolved]
